FAERS Safety Report 16963900 (Version 7)
Quarter: 2020Q4

REPORT INFORMATION
  Report Type: Report from Study
  Country: US (occurrence: US)
  Receive Date: 20191026
  Receipt Date: 20201217
  Transmission Date: 20210113
  Serious: Yes (Death, Other)
  Sender: FDA-Public Use
  Company Number: NVSC2019US015653

PATIENT
  Age: 87 Year
  Sex: Male

DRUGS (3)
  1. CYCLOPHOSPHAMIDE. [Concomitant]
     Active Substance: CYCLOPHOSPHAMIDE
     Indication: CHEMOTHERAPY
     Dosage: UNK
     Route: 065
  2. FLUDARABINE [Concomitant]
     Active Substance: FLUDARABINE PHOSPHATE
     Indication: CHEMOTHERAPY
     Dosage: UNK
     Route: 065
  3. KYMRIAH [Suspect]
     Active Substance: TISAGENLECLEUCEL
     Indication: DIFFUSE LARGE B-CELL LYMPHOMA
     Dosage: UNK
     Route: 065
     Dates: start: 20190820

REACTIONS (14)
  - Malignant neoplasm progression [Fatal]
  - Pyrexia [Unknown]
  - Platelet count decreased [Unknown]
  - Neutropenia [Unknown]
  - Haematocrit decreased [Unknown]
  - Hypogammaglobulinaemia [Unknown]
  - Diffuse large B-cell lymphoma [Fatal]
  - Diffuse large B-cell lymphoma recurrent [Fatal]
  - Neurological symptom [Unknown]
  - Haemoglobin decreased [Unknown]
  - Neurotoxicity [Recovered/Resolved]
  - Tremor [Unknown]
  - Infection [Unknown]
  - Cytokine release syndrome [Recovered/Resolved]
